FAERS Safety Report 12695330 (Version 1)
Quarter: 2016Q3

REPORT INFORMATION
  Report Type: Spontaneous
  Country: PL (occurrence: PL)
  Receive Date: 20160829
  Receipt Date: 20160829
  Transmission Date: 20161109
  Serious: Yes (Other)
  Sender: FDA-Public Use
  Company Number: PL-BAYER-2016-163342

PATIENT
  Sex: Female
  Weight: 55 kg

DRUGS (1)
  1. JAYDESS [Suspect]
     Active Substance: LEVONORGESTREL
     Indication: CONTRACEPTION
     Dosage: 14 MCG/24HR, CONT
     Route: 015
     Dates: start: 20150810

REACTIONS (17)
  - Mood altered [None]
  - Inflammation [None]
  - Nausea [None]
  - Adnexa uteri pain [None]
  - Anxiety [None]
  - Feeling abnormal [None]
  - Vaginal discharge [None]
  - Disturbance in attention [None]
  - Syncope [None]
  - Dizziness [None]
  - Activities of daily living impaired [None]
  - Weight decreased [None]
  - Sleep disorder [None]
  - Palpitations [None]
  - Asthenia [None]
  - Irritability [None]
  - Suicidal ideation [None]
